FAERS Safety Report 9233548 (Version 3)
Quarter: 2014Q2

REPORT INFORMATION
  Report Type: Spontaneous
  Country: US (occurrence: US)
  Receive Date: 20130416
  Receipt Date: 20140417
  Transmission Date: 20141212
  Serious: No
  Sender: FDA-Public Use
  Company Number: US-009507513-1304USA007155

PATIENT
  Sex: Male

DRUGS (11)
  1. DULERA [Suspect]
     Indication: ASTHMA
     Dosage: UNK
     Dates: start: 201304, end: 2014
  2. DULERA [Suspect]
     Dosage: 2 DF, BID (2 PUFFS, TWICE A DAY)
     Route: 055
     Dates: start: 20121128, end: 20130401
  3. PROAIR HFA [Concomitant]
     Dosage: UNK
  4. DYMISTA [Concomitant]
     Dosage: UNK
  5. SINGULAIR [Concomitant]
     Dosage: UNK
  6. CRESTOR [Concomitant]
     Dosage: UNK
  7. BYSTOLIC [Concomitant]
     Dosage: UNK
  8. LISINOPRIL [Concomitant]
     Dosage: UNK
  9. COLACE [Concomitant]
  10. ASPIRIN [Concomitant]
     Dosage: UNK
  11. GABAPENTIN [Concomitant]
     Dosage: UNK

REACTIONS (2)
  - Cough [Unknown]
  - Dysphonia [Recovering/Resolving]
